FAERS Safety Report 24211609 (Version 1)
Quarter: 2024Q3

REPORT INFORMATION
  Report Type: Spontaneous
  Country: DK (occurrence: DK)
  Receive Date: 20240814
  Receipt Date: 20240814
  Transmission Date: 20241016
  Serious: Yes (Other)
  Sender: MYLAN
  Company Number: DK-GRUNENTHAL-2024-123588

PATIENT
  Age: 21 Year
  Sex: Female

DRUGS (1)
  1. TRAMADOL [Suspect]
     Active Substance: TRAMADOL\TRAMADOL HYDROCHLORIDE
     Indication: Abdominal pain
     Dosage: 3750 MILLIGRAM, QD, 3750 MILLIGRAM, 1/DAY
     Route: 065

REACTIONS (6)
  - Atrial fibrillation [Recovered/Resolved]
  - Hypothermia [Recovered/Resolved]
  - Cyanosis [Recovered/Resolved]
  - Hypoglycaemia [Recovered/Resolved]
  - Loss of consciousness [Recovered/Resolved]
  - Overdose [Unknown]
